FAERS Safety Report 24592063 (Version 1)
Quarter: 2024Q4

REPORT INFORMATION
  Report Type: Spontaneous
  Country: US (occurrence: US)
  Receive Date: 20241108
  Receipt Date: 20241108
  Transmission Date: 20250115
  Serious: Yes (Life-Threatening, Hospitalization, Other)
  Sender: PROCTER AND GAMBLE
  Company Number: US-MLMSERVICE-20241016-PI225906-00030-1

PATIENT
  Sex: Male

DRUGS (2)
  1. DIPHENHYDRAMINE HYDROCHLORIDE [Suspect]
     Active Substance: DIPHENHYDRAMINE HYDROCHLORIDE
     Dosage: 350 MILLIGRAM, 1 ONLY (DIPHENHYDRAMINE (TOTAL DOSE: 350 MG OR 5 MG/KG), INGESTION)
     Route: 048
     Dates: start: 202202, end: 202202
  2. IBUPROFEN [Suspect]
     Active Substance: IBUPROFEN
     Dosage: IBUPROFEN (TOTAL DOSE: 120 G OR 1666 MG/KG), INGESTION
     Route: 048
     Dates: start: 202202, end: 202202

REACTIONS (58)
  - Loss of consciousness [Unknown]
  - Electrocardiogram QT prolonged [Unknown]
  - Metabolic acidosis [Unknown]
  - Respiratory acidosis [Unknown]
  - Bradycardia [Recovered/Resolved]
  - Cardiac arrest [Recovered/Resolved]
  - Hyperkalaemia [Unknown]
  - Acute respiratory distress syndrome [Unknown]
  - Pulmonary sequestration [Unknown]
  - Multiple organ dysfunction syndrome [Unknown]
  - Renal impairment [Not Recovered/Not Resolved]
  - Nodal rhythm [Unknown]
  - Acidosis [Unknown]
  - Hypotension [Unknown]
  - Bundle branch block right [Unknown]
  - Overdose [Unknown]
  - Pupil fixed [Recovering/Resolving]
  - Aspiration [Unknown]
  - Electrocardiogram ST segment depression [Unknown]
  - Inferior vena cava dilatation [Unknown]
  - Electrocardiogram QRS complex prolonged [Unknown]
  - Hyperdynamic left ventricle [Unknown]
  - Hypercapnia [Recovering/Resolving]
  - Vasodilatation [Unknown]
  - Vomiting [Unknown]
  - Hypoxia [Not Recovered/Not Resolved]
  - Eye movement disorder [Unknown]
  - Leukopenia [Unknown]
  - Sinus tachycardia [Unknown]
  - Electrolyte imbalance [Unknown]
  - Drug level increased [Unknown]
  - Respiration abnormal [Unknown]
  - Anion gap abnormal [Recovered/Resolved]
  - Blood pressure increased [Not Recovered/Not Resolved]
  - Blood pH decreased [Recovered/Resolved]
  - Base excess decreased [Recovering/Resolving]
  - Blood bicarbonate decreased [Recovered/Resolved]
  - Blood creatinine increased [Recovering/Resolving]
  - Blood urea increased [Recovered/Resolved]
  - Cortisol increased [Unknown]
  - Blood chloride decreased [Recovered/Resolved]
  - Blood sodium increased [Recovered/Resolved]
  - Blood lactic acid increased [Recovering/Resolving]
  - Aspartate aminotransferase increased [Unknown]
  - Alanine aminotransferase increased [Unknown]
  - Blood glucose abnormal [Recovered/Resolved]
  - Blood potassium increased [Recovered/Resolved]
  - PCO2 increased [Recovered/Resolved]
  - PO2 increased [Not Recovered/Not Resolved]
  - Heart rate increased [Recovered/Resolved]
  - Respiratory rate increased [Recovering/Resolving]
  - Carbon dioxide decreased [Recovering/Resolving]
  - Coma scale abnormal [Unknown]
  - Chest X-ray abnormal [Unknown]
  - White blood cell count increased [Not Recovered/Not Resolved]
  - Oxygen saturation decreased [Recovered/Resolved]
  - Blood glucose decreased [Recovered/Resolved]
  - PO2 decreased [Not Recovered/Not Resolved]

NARRATIVE: CASE EVENT DATE: 20220201
